FAERS Safety Report 10510753 (Version 1)
Quarter: 2014Q4

REPORT INFORMATION
  Report Type: Spontaneous
  Country: ES (occurrence: None)
  Receive Date: 20141008
  Receipt Date: 20141008
  Transmission Date: 20150528
  Serious: Yes (Life-Threatening)
  Sender: FDA-Public Use
  Company Number: ES-20140031

PATIENT
  Age: 79 Year
  Sex: Female

DRUGS (1)
  1. DOTAREM [Suspect]
     Active Substance: GADOTERATE MEGLUMINE
     Indication: PRODUCT USED FOR UNKNOWN INDICATION
     Dates: start: 20140918, end: 20140918

REACTIONS (3)
  - Lip pruritus [None]
  - Erythema [None]
  - Dysphonia [None]

NARRATIVE: CASE EVENT DATE: 20140918
